FAERS Safety Report 8329115-2 (Version None)
Quarter: 2012Q2

REPORT INFORMATION
  Report Type: 
  Country: None (occurrence: None)
  Receive Date: 20120502
  Receipt Date: 20120425
  Transmission Date: 20120825
  Serious: Yes (Other)
  Sender: FDA-Public Use
  Company Number: PHHY2012NL023669

PATIENT
  Sex: Female

DRUGS (18)
  1. FUROSEMIDE [Concomitant]
     Dosage: 1 DF, QD
  2. METFORMIN HCL [Interacting]
     Dosage: 1 DF, TID
  3. MOVICOLON [Interacting]
     Indication: CONSTIPATION
     Dosage: 1 DAILY DOSE OF 1 SATCHE
     Dates: start: 20111222
  4. ATROVENT [Concomitant]
     Dosage: 2 DAILY DOSE OF 1 INHALATION
  5. PREDNISOLONE [Suspect]
     Indication: CHRONIC OBSTRUCTIVE PULMONARY DISEASE
     Dosage: 1 DF, QD
     Route: 048
     Dates: start: 20120104
  6. ENALAPRIL MALEATE [Concomitant]
     Dosage: 1 DF, BID
  7. METAMUCIL-2 [Concomitant]
  8. INSULATARD FLEXPEN [Concomitant]
  9. FLUTICASONE PROPIONATE/SALMETEROL [Concomitant]
  10. ARTIFICIAL TEARS [Concomitant]
  11. DIAZEPAM [Concomitant]
  12. ZURE OORDRUPPELS MET TRIAMCINOLONAC. FNA [Concomitant]
  13. NEXIUM [Concomitant]
     Dosage: 1 DF, QD
  14. TRIAMCINOLONACETONIDE [Concomitant]
  15. PRAVASTATIN [Concomitant]
     Dosage: 1 DF, QD
  16. TRAMADOL HCL [Concomitant]
     Dosage: 1-6 DAILY DOSE OF 1 CAPSULE
  17. NASONEX [Concomitant]
     Dosage: 1DD1SPRAY
  18. DOXYCYCLINE [Concomitant]
     Dosage: 1 DF, QD

REACTIONS (3)
  - DRUG INTERACTION [None]
  - BLOOD GLUCOSE INCREASED [None]
  - ELECTROLYTE IMBALANCE [None]
